FAERS Safety Report 21247325 (Version 2)
Quarter: 2023Q1

REPORT INFORMATION
  Report Type: Report from Study
  Country: DE (occurrence: DE)
  Receive Date: 20220824
  Receipt Date: 20230209
  Transmission Date: 20230417
  Serious: Yes (Other)
  Sender: FDA-Public Use
  Company Number: DE-NOVARTISPH-NVSC2022DE170315

PATIENT
  Age: 73 Year
  Sex: Male
  Weight: 75 kg

DRUGS (9)
  1. CAPMATINIB [Suspect]
     Active Substance: CAPMATINIB
     Indication: Non-small cell lung cancer
     Dosage: 800 MG
     Route: 048
     Dates: start: 20220202, end: 20220805
  2. CAPMATINIB [Suspect]
     Active Substance: CAPMATINIB
     Dosage: 400 MG, BID
     Route: 048
     Dates: start: 20220203
  3. CAPMATINIB [Suspect]
     Active Substance: CAPMATINIB
     Dosage: 150 MG, BID, 2-0-2
     Route: 065
  4. CAPMATINIB [Suspect]
     Active Substance: CAPMATINIB
     Dosage: 600 MG
     Route: 065
  5. CAPMATINIB [Suspect]
     Active Substance: CAPMATINIB
     Dosage: 800 UNITS
     Route: 048
     Dates: start: 20220203, end: 20220425
  6. HYDROMORPHONE [Concomitant]
     Active Substance: HYDROMORPHONE
     Indication: Pain
     Dosage: 4 MG, BID (4 MG-0-4 MG)
     Route: 065
     Dates: start: 20211119
  7. PREGABALIN [Concomitant]
     Active Substance: PREGABALIN
     Indication: Pain
     Dosage: 75 MG, BID (75 MG-0-75 MG)
     Route: 065
     Dates: start: 20211123
  8. PANTOPRAZOLE [Concomitant]
     Active Substance: PANTOPRAZOLE
     Indication: Prophylaxis
     Dosage: 20 MG, QD (20 MG-0-0)
     Route: 065
     Dates: start: 20211118
  9. METAMIZOL [Concomitant]
     Active Substance: METAMIZOLE SODIUM
     Indication: Pain
     Dosage: 500 MG, QID (500 MG-500 MG-500 MG-500 MG))
     Route: 065
     Dates: start: 20211118

REACTIONS (3)
  - Hyperthyroidism [Not Recovered/Not Resolved]
  - Oedema peripheral [Unknown]
  - Generalised oedema [Unknown]

NARRATIVE: CASE EVENT DATE: 20220225
